FAERS Safety Report 8892103 (Version 1)
Quarter: 2012Q4

REPORT INFORMATION
  Report Type: Spontaneous
  Country: US (occurrence: None)
  Receive Date: 20121105
  Receipt Date: 20121105
  Transmission Date: 20130627
  Serious: Yes (Hospitalization)
  Sender: FDA-Public Use
  Company Number: None

PATIENT
  Age: 26 Year
  Sex: Female
  Weight: 83.46 kg

DRUGS (2)
  1. CYMBALTA [Suspect]
     Indication: DEPRESSION
     Dosage: 60 mg 1 po
     Route: 048
     Dates: start: 20120210, end: 20121029
  2. CYMBALTA [Suspect]
     Indication: ANXIETY
     Dosage: 60 mg 1 po
     Route: 048
     Dates: start: 20120210, end: 20121029

REACTIONS (1)
  - Liver function test abnormal [None]
